FAERS Safety Report 10494703 (Version 1)
Quarter: 2014Q4

REPORT INFORMATION
  Report Type: Spontaneous
  Country: BR (occurrence: BR)
  Receive Date: 20141003
  Receipt Date: 20141003
  Transmission Date: 20150528
  Serious: Yes (Hospitalization, Other)
  Sender: FDA-Public Use
  Company Number: BR-ELI_LILLY_AND_COMPANY-BR201409008194

PATIENT
  Sex: Female

DRUGS (5)
  1. NOVORAPID [Concomitant]
     Active Substance: INSULIN ASPART
     Route: 065
  2. HUMULIN N [Suspect]
     Active Substance: INSULIN HUMAN
     Dosage: 40 IU, EACH EVENING
     Route: 065
     Dates: start: 2013
  3. HUMULIN N [Suspect]
     Active Substance: INSULIN HUMAN
     Dosage: 30 IU, OTHER
     Route: 065
     Dates: start: 2013
  4. HUMULIN N [Suspect]
     Active Substance: INSULIN HUMAN
     Indication: DIABETES MELLITUS
     Dosage: UNK, UNKNOWN
     Route: 065
     Dates: start: 2004, end: 2013
  5. HUMULIN N [Suspect]
     Active Substance: INSULIN HUMAN
     Indication: DIABETES MELLITUS
     Dosage: 30 IU, EACH MORNING
     Route: 065
     Dates: start: 2013

REACTIONS (11)
  - Tremor [Unknown]
  - Vomiting [Unknown]
  - Renal disorder [Unknown]
  - Pituitary tumour [Unknown]
  - Abdominal neoplasm [Unknown]
  - Diarrhoea [Unknown]
  - Hypoglycaemia [Unknown]
  - Injection site pain [Unknown]
  - Hypotension [Unknown]
  - Blood glucose increased [Unknown]
  - Dehydration [Unknown]
